FAERS Safety Report 18873228 (Version 4)
Quarter: 2021Q2

REPORT INFORMATION
  Report Type: Spontaneous
  Country: US (occurrence: US)
  Receive Date: 20210210
  Receipt Date: 20210420
  Transmission Date: 20210717
  Serious: Yes (Hospitalization, Other)
  Sender: FDA-Public Use
  Company Number: US-SA-2021SA042527

PATIENT
  Age: 48 Year
  Sex: Female

DRUGS (2)
  1. CUVITRU [Concomitant]
     Active Substance: HUMAN IMMUNOGLOBULIN G
     Dosage: UNK, QOW
  2. DUPIXENT [Suspect]
     Active Substance: DUPILUMAB
     Indication: ASTHMA
     Dosage: 300 MG, QOW
     Route: 058
     Dates: start: 20190315

REACTIONS (7)
  - Cardiac disorder [Unknown]
  - Transient ischaemic attack [Unknown]
  - Illness [Unknown]
  - Product use issue [Unknown]
  - Hypertension [Unknown]
  - Critical illness [Unknown]
  - Unevaluable event [Unknown]

NARRATIVE: CASE EVENT DATE: 20190315
